FAERS Safety Report 7603448-7 (Version None)
Quarter: 2011Q3

REPORT INFORMATION
  Report Type: 
  Country: None (occurrence: None)
  Receive Date: 20110712
  Receipt Date: 20110701
  Transmission Date: 20111222
  Serious: Yes (Death)
  Sender: FDA-Public Use
  Company Number: TR-PFIZER INC-2011152793

PATIENT
  Age: 67 Year
  Sex: Male

DRUGS (13)
  1. TIOTROPIUM BROMIDE [Concomitant]
     Dosage: UNK
     Dates: start: 20080101
  2. DIAMICRON [Concomitant]
     Dosage: UNK
     Dates: start: 20080101
  3. CORASPIN [Concomitant]
     Dosage: UNK
     Dates: start: 20020101
  4. DIGOXIN [Concomitant]
     Dosage: UNK
     Dates: start: 20000101
  5. METFORMIN [Concomitant]
     Dosage: UNK
     Dates: start: 20080101
  6. ALDACTONE [Concomitant]
     Dosage: UNK
     Dates: start: 20080101
  7. AMIODARONE HCL [Suspect]
     Indication: VENTRICULAR ARRHYTHMIA
     Dosage: LOADING DOSE OF 600 MG DAILY FOR 10 DAYS
  8. RAMIPRIL [Concomitant]
     Dosage: UNK
     Dates: start: 20000101
  9. AVELOX [Concomitant]
     Dosage: UNK
     Dates: start: 20100222
  10. AMIODARONE HCL [Suspect]
     Dosage: 200 MG, UNK
     Dates: start: 20100217
  11. CARVEDILOL [Concomitant]
     Dosage: UNK
     Dates: start: 20080101
  12. COUMADIN [Concomitant]
     Dosage: UNK
     Dates: start: 20080101
  13. LASIX [Concomitant]
     Dosage: UNK
     Dates: start: 20080101

REACTIONS (1)
  - SUDDEN DEATH [None]
